FAERS Safety Report 14432669 (Version 1)
Quarter: 2018Q1

REPORT INFORMATION
  Report Type: Spontaneous
  Country: IT (occurrence: IT)
  Receive Date: 20180124
  Receipt Date: 20180124
  Transmission Date: 20180509
  Serious: Yes (Other)
  Sender: FDA-Public Use
  Company Number: IT-PFIZER INC-2018029944

PATIENT
  Age: 78 Year
  Sex: Male

DRUGS (4)
  1. AMARYL [Concomitant]
     Active Substance: GLIMEPIRIDE
     Dosage: UNK
  2. PLAVIX [Concomitant]
     Active Substance: CLOPIDOGREL BISULFATE
     Dosage: UNK
  3. CARDURA [Suspect]
     Active Substance: DOXAZOSIN MESYLATE
     Indication: HYPERTENSION
     Route: 048
     Dates: start: 20170101, end: 20170928
  4. TRIAMLO [Suspect]
     Active Substance: AMLODIPINE\RAMIPRIL
     Indication: HYPERTENSION
     Route: 048
     Dates: start: 20170101, end: 20170928

REACTIONS (3)
  - Hyperhidrosis [Unknown]
  - Confusional state [Unknown]
  - Presyncope [Unknown]

NARRATIVE: CASE EVENT DATE: 20170928
